FAERS Safety Report 7642326-4 (Version None)
Quarter: 2011Q3

REPORT INFORMATION
  Report Type: 
  Country: None (occurrence: None)
  Receive Date: 20110728
  Receipt Date: 20110718
  Transmission Date: 20111222
  Serious: Yes (Other)
  Sender: FDA-Public Use
  Company Number: US-JNJFOC-20110707710

PATIENT
  Sex: Female
  Weight: 53.52 kg

DRUGS (4)
  1. REMICADE [Suspect]
     Indication: PSORIASIS
     Route: 042
     Dates: start: 20080101
  2. PREMPRO [Concomitant]
     Indication: HORMONE REPLACEMENT THERAPY
     Route: 048
  3. SYNTHROID [Concomitant]
     Indication: HORMONE REPLACEMENT THERAPY
     Route: 048
     Dates: start: 19940101
  4. DYAZIDE [Concomitant]
     Dates: start: 19960101

REACTIONS (1)
  - PULMONARY MYCOSIS [None]
